FAERS Safety Report 5515719-9 (Version None)
Quarter: 2007Q4

REPORT INFORMATION
  Report Type: 
  Country: None (occurrence: None)
  Receive Date: 20071113
  Receipt Date: 20070914
  Transmission Date: 20080405
  Serious: No
  Sender: FDA-Public Use
  Company Number: A0682116A

PATIENT
  Age: 68 Year
  Sex: Male

DRUGS (10)
  1. COREG [Suspect]
     Dosage: 3.125MG TWICE PER DAY
     Route: 048
     Dates: start: 20061101, end: 20070701
  2. COREG CR [Suspect]
     Indication: DRUG USE FOR UNKNOWN INDICATION
     Dosage: 10MG PER DAY
     Route: 048
     Dates: start: 20070701
  3. ALLEGRA [Concomitant]
  4. LIPITOR [Concomitant]
  5. ZETIA [Concomitant]
  6. FISH OIL [Concomitant]
  7. VITAMIN E [Concomitant]
  8. CALCIUM [Concomitant]
  9. VITAMIN CAP [Concomitant]
  10. NIASPAN [Concomitant]

REACTIONS (2)
  - BEDRIDDEN [None]
  - FATIGUE [None]
